FAERS Safety Report 9930136 (Version 1)
Quarter: 2014Q1

REPORT INFORMATION
  Report Type: Spontaneous
  Country: US (occurrence: US)
  Receive Date: 20140227
  Receipt Date: 20140227
  Transmission Date: 20141002
  Serious: No
  Sender: FDA-Public Use
  Company Number: US-AMGEN-USASP2013070443

PATIENT
  Age: 77 Year
  Sex: Male

DRUGS (2)
  1. ENBREL [Suspect]
     Indication: PSORIATIC ARTHROPATHY
     Dosage: UNK, QWK
     Route: 065
     Dates: start: 20120301
  2. METHOTREXATE [Concomitant]
     Dosage: 8 MG, QWK

REACTIONS (6)
  - Arthralgia [Not Recovered/Not Resolved]
  - Pain [Not Recovered/Not Resolved]
  - Gait disturbance [Not Recovered/Not Resolved]
  - Muscle atrophy [Not Recovered/Not Resolved]
  - Myalgia [Not Recovered/Not Resolved]
  - Influenza [Not Recovered/Not Resolved]
